FAERS Safety Report 25093106 (Version 1)
Quarter: 2025Q1

REPORT INFORMATION
  Report Type: Spontaneous
  Country: US (occurrence: US)
  Receive Date: 20250319
  Receipt Date: 20250319
  Transmission Date: 20250409
  Serious: No
  Sender: APOTEX
  Company Number: US-APOTEX-2025AP003025

PATIENT
  Age: 14 Year
  Sex: Female
  Weight: 50 kg

DRUGS (20)
  1. IPRATROPIUM [Suspect]
     Active Substance: IPRATROPIUM
     Indication: Cardio-respiratory arrest
     Route: 065
  2. EPINEPHRINE [Concomitant]
     Active Substance: EPINEPHRINE
     Indication: Respiratory distress
     Route: 030
  3. EPINEPHRINE [Concomitant]
     Active Substance: EPINEPHRINE
     Indication: Asthma
  4. EPINEPHRINE [Concomitant]
     Active Substance: EPINEPHRINE
     Indication: Respiratory arrest
  5. EPINEPHRINE [Concomitant]
     Active Substance: EPINEPHRINE
     Indication: Cardio-respiratory arrest
  6. ALBUTEROL [Concomitant]
     Active Substance: ALBUTEROL
     Indication: Respiratory distress
     Route: 065
  7. ALBUTEROL [Concomitant]
     Active Substance: ALBUTEROL
     Indication: Asthma
  8. ALBUTEROL [Concomitant]
     Active Substance: ALBUTEROL
     Indication: Respiratory arrest
  9. ALBUTEROL [Concomitant]
     Active Substance: ALBUTEROL
     Indication: Cardio-respiratory arrest
  10. OXYGEN [Concomitant]
     Active Substance: OXYGEN
     Indication: Respiratory distress
     Route: 065
  11. OXYGEN [Concomitant]
     Active Substance: OXYGEN
     Indication: Asthma
     Route: 065
  12. OXYGEN [Concomitant]
     Active Substance: OXYGEN
     Indication: Respiratory arrest
  13. OXYGEN [Concomitant]
     Active Substance: OXYGEN
     Indication: Cardio-respiratory arrest
  14. ROCURONIUM [Concomitant]
     Active Substance: ROCURONIUM BROMIDE
     Indication: Endotracheal intubation
     Route: 065
  15. KETAMINE [Concomitant]
     Active Substance: KETAMINE
     Indication: Induction of anaesthesia
     Route: 065
  16. METHYLPREDNISOLONE [Concomitant]
     Active Substance: METHYLPREDNISOLONE
     Indication: Drug therapy
     Route: 065
  17. MAGNESIUM SULFATE [Concomitant]
     Active Substance: MAGNESIUM SULFATE
     Indication: Drug therapy
     Route: 065
  18. AMINOPHYLLINE [Concomitant]
     Active Substance: AMINOPHYLLINE
     Indication: Drug therapy
     Route: 065
  19. FENTANYL [Concomitant]
     Active Substance: FENTANYL
     Indication: Product used for unknown indication
     Route: 065
  20. VECURONIUM [Concomitant]
     Active Substance: VECURONIUM BROMIDE
     Indication: Paralysis
     Route: 065

REACTIONS (2)
  - Accidental exposure to product [Unknown]
  - Mydriasis [Recovered/Resolved]
